FAERS Safety Report 12818306 (Version 1)
Quarter: 2016Q4

REPORT INFORMATION
  Report Type: Spontaneous
  Country: US (occurrence: US)
  Receive Date: 20161006
  Receipt Date: 20161006
  Transmission Date: 20170207
  Serious: No
  Sender: FDA-Public Use
  Company Number: US-DRREDDYS-DRL/USA/16/0078965

PATIENT
  Sex: 0

DRUGS (1)
  1. SUMATRIPTAN SUCCINATE TABLETS [Suspect]
     Active Substance: SUMATRIPTAN SUCCINATE
     Indication: MIGRAINE
     Route: 065

REACTIONS (6)
  - Dizziness [Recovering/Resolving]
  - Treatment noncompliance [Unknown]
  - Product quality issue [Unknown]
  - Malaise [Unknown]
  - Nausea [Recovering/Resolving]
  - Drug ineffective [Unknown]
